FAERS Safety Report 8810260 (Version 1)
Quarter: 2012Q4

REPORT INFORMATION
  Report Type: 
  Country: US (occurrence: US)
  Receive Date: 20120926
  Receipt Date: 20120926
  Transmission Date: 20130627
  Serious: No
  Sender: FDA-Public Use
  Company Number: US-009507513-1209USA006877

PATIENT
  Age: 30 Year
  Sex: Male

DRUGS (3)
  1. PEGINTRON [Suspect]
     Indication: HEPATITIS C
     Dosage: 150 Microgram, qw
     Route: 058
     Dates: start: 20120604
  2. RIBASPHERE [Suspect]
  3. TELAPREVIR [Concomitant]

REACTIONS (4)
  - Pneumonia [Unknown]
  - Rash generalised [Unknown]
  - Pruritus generalised [Unknown]
  - Dry mouth [Unknown]
